FAERS Safety Report 7772703-2 (Version None)
Quarter: 2011Q3

REPORT INFORMATION
  Report Type: 
  Country: None (occurrence: None)
  Receive Date: 20110922
  Receipt Date: 20110120
  Transmission Date: 20111222
  Serious: No
  Sender: FDA-Public Use
  Company Number: US-ASTRAZENECA-2011SE03406

PATIENT
  Sex: Female

DRUGS (14)
  1. LAMOTRIGINE [Concomitant]
     Indication: AFFECTIVE DISORDER
     Route: 048
     Dates: start: 20070629
  2. ALENDRONATE SODIUM [Concomitant]
     Dosage: 70 MG EVERY 7 DAYS
     Route: 048
     Dates: start: 20060707
  3. SEROQUEL [Suspect]
     Indication: SLEEP DISORDER
     Route: 048
     Dates: start: 20060707
  4. CALCIUM CARBONATE [Concomitant]
     Dosage: 1.25 GM THREE TIMES A DAY
     Route: 048
     Dates: start: 20060707
  5. SERTRALINE HYDROCHLORIDE [Concomitant]
     Indication: ANXIETY
     Dosage: 50 MG TO 150 MG
     Route: 048
     Dates: start: 20030501
  6. IBUPROFEN [Concomitant]
     Route: 048
     Dates: start: 20060707
  7. OXYBUTYNIN CHLORIDE [Concomitant]
     Indication: URGE INCONTINENCE
     Dosage: 5 MG ONE HALF TABLET THREE TIMES A DAY
     Route: 048
     Dates: start: 20060707
  8. TOPAMAX [Concomitant]
     Indication: AFFECTIVE DISORDER
     Dosage: 25 MG TO 50 MG
     Dates: start: 20060707
  9. TRAZODONE HYDROCHLORIDE [Concomitant]
     Route: 048
     Dates: end: 20060707
  10. LAMOTRIGINE [Concomitant]
     Indication: DEPRESSION
     Route: 048
     Dates: start: 20070629
  11. SERTRALINE HYDROCHLORIDE [Concomitant]
     Indication: DEPRESSION
     Dosage: 50 MG TO 150 MG
     Route: 048
     Dates: start: 20030501
  12. SERTRALINE HYDROCHLORIDE [Concomitant]
     Indication: SLEEP DISORDER
     Dosage: 50 MG TO 150 MG
     Route: 048
     Dates: start: 20030501
  13. DEPAKOTE [Concomitant]
     Dates: start: 20030501, end: 20060707
  14. NAPROXEN [Concomitant]
     Route: 048
     Dates: start: 20070629

REACTIONS (7)
  - HEPATIC CYST [None]
  - MUSCULOSKELETAL PAIN [None]
  - SEBACEOUS HYPERPLASIA [None]
  - DERMATITIS [None]
  - BIPOLAR I DISORDER [None]
  - PAIN [None]
  - PAIN IN EXTREMITY [None]
